FAERS Safety Report 8839256 (Version 4)
Quarter: 2013Q2

REPORT INFORMATION
  Report Type: Report from Study
  Country: CA (occurrence: CA)
  Receive Date: 20121015
  Receipt Date: 20130515
  Transmission Date: 20140414
  Serious: Yes (Hospitalization, Other)
  Sender: FDA-Public Use
  Company Number: CA-JNJFOC-20121003044

PATIENT
  Age: 31 Year
  Sex: Male
  Weight: 100 kg

DRUGS (9)
  1. REMICADE [Suspect]
     Indication: CROHN^S DISEASE
     Route: 042
     Dates: start: 20130312
  2. REMICADE [Suspect]
     Indication: CROHN^S DISEASE
     Route: 042
     Dates: start: 20121205
  3. REMICADE [Suspect]
     Indication: CROHN^S DISEASE
     Route: 042
     Dates: start: 20121003
  4. REMICADE [Suspect]
     Indication: CROHN^S DISEASE
     Dosage: 7TH INFUSION
     Route: 042
     Dates: start: 20120808
  5. REMICADE [Suspect]
     Indication: CROHN^S DISEASE
     Route: 042
     Dates: start: 20111116
  6. STEROIDS NOS [Concomitant]
     Route: 061
  7. MORPHINE [Concomitant]
     Route: 065
  8. TYLENOL [Concomitant]
     Route: 065
  9. TYLENOL 3 [Concomitant]
     Route: 065

REACTIONS (4)
  - Fistula [Recovering/Resolving]
  - Ear pain [Recovered/Resolved]
  - Rash erythematous [Not Recovered/Not Resolved]
  - Furuncle [Recovered/Resolved]
